FAERS Safety Report 9184887 (Version 1)
Quarter: 2013Q1

REPORT INFORMATION
  Report Type: Spontaneous
  Country: US (occurrence: US)
  Receive Date: 20130325
  Receipt Date: 20130325
  Transmission Date: 20140127
  Serious: Yes (Other)
  Sender: FDA-Public Use
  Company Number: US-BRISTOL-MYERS SQUIBB COMPANY-16515421

PATIENT
  Age: 84 Year
  Sex: Male

DRUGS (2)
  1. ERBITUX [Suspect]
     Indication: LIP AND/OR ORAL CAVITY CANCER
     Dosage: 29MAR12-10MAY12,05APR12-26APR12 HOLD DOSE,INF: 05APR12,26APR12,03MAY12,10MAY12
     Route: 042
     Dates: start: 20120329
  2. CLINDAMYCIN [Concomitant]
     Dosage: LIQUID

REACTIONS (3)
  - Rash [Unknown]
  - Malaise [Unknown]
  - Speech disorder [Unknown]
